FAERS Safety Report 5430425-7 (Version None)
Quarter: 2007Q3

REPORT INFORMATION
  Report Type: 
  Country: None (occurrence: None)
  Receive Date: 20070731
  Receipt Date: 20070507
  Transmission Date: 20080115
  Serious: No
  Sender: FDA-Public Use
  Company Number: US200705002139

PATIENT
  Age: 58 Year
  Sex: Female
  Weight: 85.3 kg

DRUGS (5)
  1. BYETTA [Suspect]
     Indication: TYPE 2 DIABETES MELLITUS
     Dosage: SEE IMAGE
     Route: 058
     Dates: start: 20061001, end: 20061101
  2. BYETTA [Suspect]
     Indication: TYPE 2 DIABETES MELLITUS
     Dosage: SEE IMAGE
     Route: 058
     Dates: start: 20061001
  3. BYETTA [Suspect]
     Indication: TYPE 2 DIABETES MELLITUS
     Dosage: SEE IMAGE
     Route: 058
     Dates: start: 20061101
  4. GLUCOTROL [Concomitant]
  5. METFORMIN HCL [Concomitant]

REACTIONS (4)
  - BLOOD GLUCOSE DECREASED [None]
  - DECREASED APPETITE [None]
  - NERVOUSNESS [None]
  - WEIGHT DECREASED [None]
